FAERS Safety Report 23710071 (Version 3)
Quarter: 2024Q4

REPORT INFORMATION
  Report Type: Spontaneous
  Country: US (occurrence: US)
  Receive Date: 20240405
  Receipt Date: 20241206
  Transmission Date: 20250115
  Serious: No
  Sender: SANOFI AVENTIS
  Company Number: US-SA-SAC20240401001237

PATIENT
  Age: 70 Year
  Sex: Male

DRUGS (3)
  1. DUPIXENT [Suspect]
     Active Substance: DUPILUMAB
     Indication: Dermatitis atopic
     Dosage: 600 MG, 1X
     Route: 058
     Dates: start: 20240312, end: 20240312
  2. DUPIXENT [Suspect]
     Active Substance: DUPILUMAB
     Dosage: 300 MG, QOW
     Route: 058
     Dates: start: 20240326, end: 202411
  3. RINVOQ [Concomitant]
     Active Substance: UPADACITINIB
     Dosage: UNK
     Dates: start: 202411

REACTIONS (6)
  - Eczema [Unknown]
  - Pruritus [Not Recovered/Not Resolved]
  - Dermatitis atopic [Unknown]
  - Skin lesion [Unknown]
  - Arthralgia [Not Recovered/Not Resolved]
  - Drug ineffective [Unknown]

NARRATIVE: CASE EVENT DATE: 20240101
